FAERS Safety Report 7878801-7 (Version None)
Quarter: 2011Q4

REPORT INFORMATION
  Report Type: 
  Country: None (occurrence: None)
  Receive Date: 20111028
  Receipt Date: 20111020
  Transmission Date: 20120403
  Serious: Yes (Life-Threatening)
  Sender: FDA-Public Use
  Company Number: 2011AP001956

PATIENT
  Age: 64 Year
  Sex: Male

DRUGS (9)
  1. PERINDOPRIL ERBUMINE [Concomitant]
  2. SIMVASTATIN [Concomitant]
  3. LEFLUNOMIDE [Suspect]
     Indication: RHEUMATOID ARTHRITIS
     Dosage: 10 MG;PO
     Route: 048
     Dates: start: 20110707
  4. PREDNISOLONE [Concomitant]
  5. BENDROFLUMETHIAZIDE (BENDROFLUMIETHIAZIDE) [Concomitant]
  6. OMEPRAZOLE [Concomitant]
  7. AMLODIPINE BESYLATE [Concomitant]
  8. TAMSULOSIN HCL [Concomitant]
  9. NAPROXEN [Concomitant]

REACTIONS (1)
  - ISCHAEMIC STROKE [None]
